FAERS Safety Report 9815728 (Version 1)
Quarter: 2014Q1

REPORT INFORMATION
  Report Type: Spontaneous
  Country: IN (occurrence: None)
  Receive Date: 20140110
  Receipt Date: 20140110
  Transmission Date: 20141002
  Serious: Yes (Hospitalization)
  Sender: FDA-Public Use
  Company Number: 2013P1022420

PATIENT
  Age: 13 Year
  Sex: Female

DRUGS (3)
  1. LEVOFLOXACIN [Suspect]
     Indication: BRONCHITIS
     Route: 048
  2. ANTITUSSIVE [Concomitant]
  3. ANTIPYRETICS, ANALGESICS ANTIPYRETICS, ANALGESICS AGENTS [Concomitant]

REACTIONS (11)
  - Delirium [None]
  - Dizziness [None]
  - Vomiting [None]
  - Restlessness [None]
  - Tremor [None]
  - Hypokinesia [None]
  - Hyporesponsive to stimuli [None]
  - Confusional state [None]
  - Disorientation [None]
  - Neurotoxicity [None]
  - Speech disorder [None]
